FAERS Safety Report 4381942-2 (Version None)
Quarter: 2004Q2

REPORT INFORMATION
  Report Type: 
  Country: None (occurrence: None)
  Receive Date: 20040615
  Receipt Date: 20040607
  Transmission Date: 20050107
  Serious: Yes (Hospitalization)
  Sender: FDA-Public Use
  Company Number: D-A2581078-3448

PATIENT
  Age: 79 Year
  Sex: Male

DRUGS (2)
  1. DONEPEZIL HCL [Suspect]
     Indication: DEMENTIA ALZHEIMER'S TYPE
     Dosage: 10 MG, 1 IN 1 D, ORAL
     Route: 048
     Dates: start: 20030618
  2. LIPITOR/PLACEBO (ATORVASTATIN) [Suspect]
     Indication: DEMENTIA ALZHEIMER'S TYPE
     Dosage: DOUBLEBLIND, 1 IN 1 D, ORAL
     Route: 048
     Dates: start: 20030618

REACTIONS (4)
  - BUNDLE BRANCH BLOCK LEFT [None]
  - FALL [None]
  - SYNCOPE [None]
  - VENTRICULAR TACHYCARDIA [None]
